FAERS Safety Report 6689049-6 (Version None)
Quarter: 2010Q2

REPORT INFORMATION
  Report Type: 
  Country: None (occurrence: None)
  Receive Date: 20100420
  Receipt Date: 20100414
  Transmission Date: 20101027
  Serious: Yes (Death, Hospitalization)
  Sender: FDA-Public Use
  Company Number: PHEH2010US02982

PATIENT
  Sex: Male

DRUGS (30)
  1. RECLAST [Suspect]
     Indication: OSTEOPOROSIS
     Dosage: 5 MG/ 100 ML
     Route: 042
     Dates: start: 20090424
  2. INDERAL LA [Concomitant]
     Dosage: 40 MG ALTERNATE MORNINGS
     Route: 048
  3. AMIODARONE [Concomitant]
     Dosage: 200 MG ALTERNATE MORNINGS
     Route: 048
  4. GLUCOTROL XL [Concomitant]
     Dosage: 10 MG, BID
     Route: 048
  5. FLOMAX [Concomitant]
     Dosage: 0.4 MG, QD
     Route: 048
  6. PAXIL [Concomitant]
     Dosage: 20 MG, QD
     Route: 048
  7. ALLOPURINOL [Concomitant]
     Dosage: 150 MG, QD
     Route: 048
  8. ZOCOR [Concomitant]
     Dosage: 40 MG, QD
     Route: 048
  9. ARICEPT [Concomitant]
     Dosage: 10 MG, QD
     Route: 048
  10. NAMENDA [Concomitant]
     Dosage: 10 MG, BID
     Route: 048
  11. DIGOXIN [Concomitant]
     Dosage: 0.125 MG, QD
     Route: 048
  12. ALLEGRA [Concomitant]
     Dosage: 100 MG, QD
     Route: 048
  13. VERAPAMIL [Concomitant]
     Indication: HYPOTENSION
     Dosage: 80 MG, Q8H
  14. SENOKOT                                 /UNK/ [Concomitant]
     Dosage: 2 DF, BID
  15. LANTUS [Concomitant]
     Dosage: 16 U, DAILY
     Route: 058
  16. MEGACE [Concomitant]
     Dosage: 400 MG, BID
  17. ARANESP [Concomitant]
     Dosage: 100 UG, QW
     Route: 058
  18. ATIVAN [Concomitant]
     Dosage: 0.5 MG, Q4H, AS NEEDED
  19. OCEAN NASAL SPRAY [Concomitant]
     Dosage: 3 TIMES DAILY
  20. COUMADIN [Concomitant]
  21. RISPERDAL [Concomitant]
     Dosage: 1 MG, DAILY
  22. NOVOLIN [Concomitant]
  23. MUCOMYST [Concomitant]
     Dosage: 600 MG, BID
     Route: 048
  24. PROAMATINE [Concomitant]
     Dosage: 5 MG, Q8H
  25. ANCEF [Concomitant]
     Dosage: 1 G, UNK
     Route: 042
  26. LORAZEPAM [Concomitant]
     Dosage: 0.5 MG, Q4H, AS NEEDED
  27. MORPHINE [Concomitant]
     Dosage: 4 MG, Q2H
     Route: 042
  28. ZOFRAN [Concomitant]
     Dosage: 4 MG, Q4H, AS NEEDED
     Route: 042
  29. NOVOLOG [Concomitant]
  30. CALAN [Concomitant]
     Dosage: 80 MG, Q8H

REACTIONS (20)
  - ANURIA [None]
  - ATELECTASIS [None]
  - BLOOD CREATINE PHOSPHOKINASE INCREASED [None]
  - CONTINUOUS HAEMODIAFILTRATION [None]
  - CYANOSIS [None]
  - DEATH [None]
  - DEEP VEIN THROMBOSIS [None]
  - HYPOTENSION [None]
  - ISCHAEMIC HEPATITIS [None]
  - METABOLIC ACIDOSIS [None]
  - OEDEMA PERIPHERAL [None]
  - OLIGURIA [None]
  - PERIPHERAL COLDNESS [None]
  - RASH [None]
  - RENAL FAILURE ACUTE [None]
  - RHABDOMYOLYSIS [None]
  - SEPSIS [None]
  - SEPTIC SHOCK [None]
  - SYSTEMIC INFLAMMATORY RESPONSE SYNDROME [None]
  - THROMBECTOMY [None]
